APPROVED DRUG PRODUCT: METOPROLOL SUCCINATE
Active Ingredient: METOPROLOL SUCCINATE
Strength: EQ 100MG TARTRATE
Dosage Form/Route: TABLET, EXTENDED RELEASE;ORAL
Application: A211143 | Product #003 | TE Code: AB
Applicant: ALKEM LABORATORIES LTD
Approved: Nov 25, 2020 | RLD: No | RS: No | Type: RX